FAERS Safety Report 6221155-2 (Version None)
Quarter: 2009Q2

REPORT INFORMATION
  Report Type: 
  Country: None (occurrence: None)
  Receive Date: 20090610
  Receipt Date: 20090602
  Transmission Date: 20091009
  Serious: Yes (Hospitalization, Other)
  Sender: FDA-Public Use
  Company Number: CA-ASTRAZENECA-2009UW14219

PATIENT
  Sex: Female

DRUGS (8)
  1. SEROQUEL [Suspect]
     Indication: POST-TRAUMATIC STRESS DISORDER
     Route: 048
     Dates: start: 20060101
  2. SEROQUEL [Suspect]
     Indication: SLEEP DISORDER
     Route: 048
     Dates: start: 20060101
  3. SEROQUEL [Suspect]
     Dosage: 25 MG BID PRN
     Route: 048
     Dates: start: 20060101
  4. SEROQUEL [Suspect]
     Dosage: 25 MG BID PRN
     Route: 048
     Dates: start: 20060101
  5. WELLBUTRIN [Concomitant]
  6. DETROL LA [Concomitant]
     Indication: BLADDER DISORDER
  7. ALENDRONATE [Concomitant]
     Indication: OSTEOPOROSIS
  8. SINEMET [Concomitant]
     Indication: RESTLESS LEGS SYNDROME
     Dosage: 10/25

REACTIONS (7)
  - BLOOD GLUCOSE DECREASED [None]
  - DIZZINESS [None]
  - DRY MOUTH [None]
  - IRRITABILITY [None]
  - MEMORY IMPAIRMENT [None]
  - RESTLESS LEGS SYNDROME [None]
  - THIRST [None]
